FAERS Safety Report 7598208-X (Version None)
Quarter: 2011Q3

REPORT INFORMATION
  Report Type: 
  Country: None (occurrence: None)
  Receive Date: 20110708
  Receipt Date: 20110627
  Transmission Date: 20111222
  Serious: Yes (Hospitalization)
  Sender: FDA-Public Use
  Company Number: GB-JNJFOC-20110602213

PATIENT
  Sex: Male

DRUGS (1)
  1. SIMPONI [Suspect]
     Indication: ILL-DEFINED DISORDER
     Route: 058
     Dates: start: 20110503

REACTIONS (6)
  - JOINT SWELLING [None]
  - ARTHRALGIA [None]
  - PAIN [None]
  - DIARRHOEA [None]
  - MALAISE [None]
  - ANAEMIA [None]
